FAERS Safety Report 8130993-0 (Version None)
Quarter: 2012Q1

REPORT INFORMATION
  Report Type: 
  Country: None (occurrence: None)
  Receive Date: 20120208
  Receipt Date: 20120208
  Transmission Date: 20120608
  Serious: Yes (Life-Threatening, Hospitalization)
  Sender: FDA-Public Use
  Company Number: None

PATIENT
  Age: 60 Year
  Sex: Male
  Weight: 74.7 kg

DRUGS (2)
  1. DOXORUBICIN HCL [Suspect]
     Indication: NON-HODGKIN'S LYMPHOMA
     Dosage: 92 MG ONCE IV
     Route: 042
     Dates: start: 20120125, end: 20120201
  2. PEGINTERFERON ALFA-2B [Suspect]
     Indication: HEPATITIS C
     Dosage: 180 MG QWEEK SQ
     Route: 058
     Dates: start: 20120127, end: 20120201

REACTIONS (2)
  - THERAPEUTIC RESPONSE DECREASED [None]
  - ACUTE MYOCARDIAL INFARCTION [None]
